FAERS Safety Report 13903925 (Version 2)
Quarter: 2017Q3

REPORT INFORMATION
  Report Type: Spontaneous
  Country: IN (occurrence: IN)
  Receive Date: 20170824
  Receipt Date: 20170825
  Transmission Date: 20171127
  Serious: Yes (Death, Other)
  Sender: FDA-Public Use
  Company Number: PHHY2017IN122467

PATIENT
  Age: 32 Year
  Sex: Male

DRUGS (8)
  1. METHOTREXATE. [Concomitant]
     Active Substance: METHOTREXATE
     Indication: PROPHYLAXIS AGAINST GRAFT VERSUS HOST DISEASE
  2. COTRIMOXAZOLE [Concomitant]
     Active Substance: SULFAMETHOXAZOLE\TRIMETHOPRIM
     Indication: ANTIBIOTIC PROPHYLAXIS
     Dosage: 2BD TWICE A WEEK
     Route: 065
  3. ACYCLOVIR. [Concomitant]
     Active Substance: ACYCLOVIR
     Indication: ANTIBIOTIC PROPHYLAXIS
     Dosage: 400 MG, BID
     Route: 065
  4. FLUCONAZOLE. [Concomitant]
     Active Substance: FLUCONAZOLE
     Indication: ANTIBIOTIC PROPHYLAXIS
     Dosage: 200 MG, QD
     Route: 065
  5. CICLOSPORIN [Suspect]
     Active Substance: CYCLOSPORINE
     Indication: PROPHYLAXIS AGAINST GRAFT VERSUS HOST DISEASE
  6. CICLOSPORIN [Suspect]
     Active Substance: CYCLOSPORINE
     Indication: STEM CELL TRANSPLANT
     Dosage: 150 MG, BID
     Route: 065
  7. BETADINE [Concomitant]
     Active Substance: POVIDONE-IODINE
     Indication: PROPHYLAXIS
     Dosage: UNK UNK, BID
     Route: 065
  8. METHOTREXATE. [Concomitant]
     Active Substance: METHOTREXATE
     Indication: STEM CELL TRANSPLANT
     Route: 065

REACTIONS (13)
  - Dyspnoea exertional [Fatal]
  - Septic shock [Fatal]
  - Graft versus host disease in gastrointestinal tract [Not Recovered/Not Resolved]
  - Acute respiratory distress syndrome [Fatal]
  - Thrombotic microangiopathy [Fatal]
  - Skin exfoliation [Unknown]
  - Diarrhoea haemorrhagic [Unknown]
  - Haematuria [Fatal]
  - Skin depigmentation [Unknown]
  - Blister [Unknown]
  - Epidermal necrosis [Unknown]
  - Acute graft versus host disease in skin [Not Recovered/Not Resolved]
  - Dermatitis exfoliative [Unknown]
